FAERS Safety Report 16133327 (Version 1)
Quarter: 2019Q1

REPORT INFORMATION
  Report Type: Spontaneous
  Country: US (occurrence: US)
  Receive Date: 20190329
  Receipt Date: 20190329
  Transmission Date: 20190418
  Serious: No
  Sender: FDA-Public Use
  Company Number: US-ASTRAZENECA-2019SE35067

PATIENT
  Age: 22576 Day
  Sex: Male
  Weight: 79.8 kg

DRUGS (4)
  1. SYMBICORT [Suspect]
     Active Substance: BUDESONIDE\FORMOTEROL FUMARATE DIHYDRATE
     Indication: CHRONIC OBSTRUCTIVE PULMONARY DISEASE
     Dosage: 2 PUFFS AS NEEDED AS REQUIRED
     Route: 055
     Dates: start: 20190222
  2. SYMBICORT [Suspect]
     Active Substance: BUDESONIDE\FORMOTEROL FUMARATE DIHYDRATE
     Indication: ASTHMA-CHRONIC OBSTRUCTIVE PULMONARY DISEASE OVERLAP SYNDROME
     Dosage: 2 PUFFS AS NEEDED AS REQUIRED
     Route: 055
     Dates: start: 20190222
  3. SYMBICORT [Suspect]
     Active Substance: BUDESONIDE\FORMOTEROL FUMARATE DIHYDRATE
     Indication: ASTHMA-CHRONIC OBSTRUCTIVE PULMONARY DISEASE OVERLAP SYNDROME
     Dosage: TWO TIMES A DAY
     Route: 055
     Dates: start: 201901
  4. SYMBICORT [Suspect]
     Active Substance: BUDESONIDE\FORMOTEROL FUMARATE DIHYDRATE
     Indication: CHRONIC OBSTRUCTIVE PULMONARY DISEASE
     Dosage: TWO TIMES A DAY
     Route: 055
     Dates: start: 201901

REACTIONS (9)
  - Cough [Unknown]
  - Product dose omission [Unknown]
  - Nasopharyngitis [Unknown]
  - Intentional product misuse [Unknown]
  - Device failure [Unknown]
  - Blood immunoglobulin E increased [Unknown]
  - Dyspnoea [Unknown]
  - Lung disorder [Unknown]
  - Wheezing [Unknown]

NARRATIVE: CASE EVENT DATE: 20190222
